FAERS Safety Report 10746804 (Version 4)
Quarter: 2015Q3

REPORT INFORMATION
  Report Type: Spontaneous
  Country: JP (occurrence: JP)
  Receive Date: 20150129
  Receipt Date: 20150728
  Transmission Date: 20151125
  Serious: Yes (Life-Threatening, Hospitalization, Disabling)
  Sender: FDA-Public Use
  Company Number: PHHY2015JP006056

PATIENT
  Age: 62 Year
  Sex: Male
  Weight: 59 kg

DRUGS (22)
  1. DIOVAN [Concomitant]
     Active Substance: VALSARTAN
     Indication: HYPERTENSION
     Dosage: 160 MG, UNK
     Route: 048
  2. ATORVASTATIN [Concomitant]
     Active Substance: ATORVASTATIN
     Indication: DYSLIPIDAEMIA
     Dosage: 5 MG, QD
     Route: 048
  3. UBRETID [Concomitant]
     Active Substance: DISTIGMINE BROMIDE
     Indication: NEUROGENIC BLADDER
     Dosage: 5 MG, QD
     Route: 048
     Dates: start: 20111213, end: 20140620
  4. NIZATIDINE. [Concomitant]
     Active Substance: NIZATIDINE
     Indication: PROPHYLAXIS
     Dosage: 300 MG, UNK
     Route: 048
     Dates: start: 20120731
  5. RINPRAL [Concomitant]
     Active Substance: EPERISONE
     Indication: PARALYSIS
     Dosage: 100 MG, UNK
     Route: 048
  6. NAIXAN [Concomitant]
     Active Substance: NAPROXEN SODIUM
     Indication: BACK PAIN
     Dosage: 900 MG, UNK
     Route: 048
     Dates: end: 20120530
  7. BUPVERINE [Concomitant]
     Indication: NEUROGENIC BLADDER
     Dosage: 10 MG, BID
     Route: 048
     Dates: end: 20140620
  8. SELBEX [Concomitant]
     Active Substance: TEPRENONE
     Indication: PROPHYLAXIS
     Dosage: 150 MG, UNK
     Route: 048
  9. CORINAEL L [Concomitant]
     Indication: HYPERTENSION
     Dosage: 20 MG, UNK
     Route: 048
  10. NIFEDIPINE. [Concomitant]
     Active Substance: NIFEDIPINE
     Indication: HYPERTENSION
     Dosage: 10 MG, BID
     Route: 048
     Dates: end: 20140618
  11. AVONEX [Concomitant]
     Active Substance: INTERFERON BETA-1A
     Indication: MULTIPLE SCLEROSIS
     Dosage: 30 UG, QW
     Route: 030
     Dates: end: 20120207
  12. EBRANTIL [Concomitant]
     Active Substance: URAPIDIL
     Indication: NEUROGENIC BLADDER
     Dosage: 15 MG, UNK
     Route: 048
     Dates: end: 20140620
  13. RHYTHMY [Concomitant]
     Active Substance: RILMAZAFONE HYDROCHLORIDE
     Indication: INSOMNIA
     Dosage: 2 MG, UNK
     Route: 048
  14. MYORELARK [Concomitant]
     Indication: MULTIPLE SCLEROSIS
     Dosage: 50 MG, BID
     Route: 048
     Dates: end: 20140731
  15. GILENYA [Suspect]
     Active Substance: FINGOLIMOD HYDROCHLORIDE
     Indication: MULTIPLE SCLEROSIS
     Dosage: 0.5 MG, QD
     Route: 048
     Dates: start: 20120207, end: 20140613
  16. LIORESAL [Concomitant]
     Active Substance: BACLOFEN
     Indication: PARALYSIS
     Dosage: 20 MG, UNK
     Route: 048
  17. BAYASPIRIN [Concomitant]
     Active Substance: ASPIRIN
     Indication: MYOCARDIAL ISCHAEMIA
     Dosage: 100 MG, QD
     Route: 048
  18. TENORMIN [Concomitant]
     Active Substance: ATENOLOL
     Indication: HYPERTENSION
     Dosage: 50 MG, UNK
     Route: 048
  19. TIZANON [Concomitant]
     Indication: PROPHYLAXIS
     Dosage: 300 MG, UNK
     Route: 048
     Dates: end: 20120730
  20. PLAVIX [Concomitant]
     Active Substance: CLOPIDOGREL BISULFATE
     Indication: MYOCARDIAL ISCHAEMIA
     Dosage: 75 MG, QD
     Route: 048
     Dates: end: 20140805
  21. DIOVAN [Concomitant]
     Active Substance: VALSARTAN
     Dosage: 40 MG, BID
     Route: 048
     Dates: end: 20140731
  22. LORFENAMIN [Concomitant]
     Active Substance: LOXOPROFEN
     Indication: MULTIPLE SCLEROSIS
     Dosage: 180 MG, UNK
     Route: 048
     Dates: start: 20111213

REACTIONS (18)
  - Disseminated cryptococcosis [Recovered/Resolved with Sequelae]
  - Slow speech [Unknown]
  - Abasia [Unknown]
  - Pneumonia cryptococcal [Recovered/Resolved]
  - Muscular weakness [Not Recovered/Not Resolved]
  - Decreased activity [Unknown]
  - Lymphocyte percentage decreased [Recovered/Resolved]
  - Pneumonia aspiration [Recovering/Resolving]
  - Pulmonary congestion [Unknown]
  - Septic shock [Recovering/Resolving]
  - Meningitis cryptococcal [Recovered/Resolved]
  - Acute coronary syndrome [Recovering/Resolving]
  - Central nervous system lesion [Unknown]
  - White blood cell count decreased [Recovered/Resolved]
  - Cryptococcal cutaneous infection [Recovered/Resolved]
  - Repetitive speech [Unknown]
  - Pyrexia [Unknown]
  - Cognitive disorder [Unknown]

NARRATIVE: CASE EVENT DATE: 201402
